FAERS Safety Report 11254061 (Version 2)
Quarter: 2015Q3

REPORT INFORMATION
  Report Type: Spontaneous
  Country: IT (occurrence: IT)
  Receive Date: 20150709
  Receipt Date: 20150715
  Transmission Date: 20151125
  Serious: Yes (Hospitalization)
  Sender: FDA-Public Use
  Company Number: IT-ASTRAZENECA-2015SE50866

PATIENT
  Age: 73 Year
  Sex: Male

DRUGS (10)
  1. OMNIC [Concomitant]
     Active Substance: TAMSULOSIN HYDROCHLORIDE
  2. LASIX [Concomitant]
     Active Substance: FUROSEMIDE
  3. FUROSEMIDE. [Suspect]
     Active Substance: FUROSEMIDE
     Route: 065
  4. BIFRIL [Concomitant]
     Active Substance: ZOFENOPRIL
  5. MEPRAL [Suspect]
     Active Substance: OMEPRAZOLE SODIUM
     Indication: PROPHYLAXIS AGAINST GASTROINTESTINAL ULCER
     Route: 048
  6. CONGESCOR [Concomitant]
     Active Substance: BISOPROLOL
  7. NORVASC [Concomitant]
     Active Substance: AMLODIPINE BESYLATE
  8. CARDIOASPIRIN [Concomitant]
     Active Substance: ASPIRIN
  9. EN [Concomitant]
     Active Substance: DELORAZEPAM
  10. BRILIQUE [Concomitant]
     Active Substance: TICAGRELOR

REACTIONS (6)
  - Hypocalcaemia [Recovering/Resolving]
  - Hypomagnesaemia [Recovering/Resolving]
  - Dysarthria [Recovering/Resolving]
  - Pneumonia [Recovering/Resolving]
  - Hypokalaemia [Recovering/Resolving]
  - Somnolence [Recovering/Resolving]

NARRATIVE: CASE EVENT DATE: 201412
